FAERS Safety Report 24923980 (Version 1)
Quarter: 2025Q1

REPORT INFORMATION
  Report Type: Spontaneous
  Country: DE (occurrence: DE)
  Receive Date: 20250204
  Receipt Date: 20250204
  Transmission Date: 20250409
  Serious: Yes (Hospitalization)
  Sender: DAIICHI
  Company Number: DE-DSJP-DS-2025-121376-DE

PATIENT
  Age: 85 Year
  Sex: Female
  Weight: 75 kg

DRUGS (1)
  1. EDOXABAN TOSYLATE [Suspect]
     Active Substance: EDOXABAN TOSYLATE
     Indication: Product used for unknown indication
     Dosage: 30 MG, BID (30 MG MORNING AND 30 MG EVENING)
     Route: 065

REACTIONS (3)
  - Hypertension [Not Recovered/Not Resolved]
  - Mouth haemorrhage [Unknown]
  - Inappropriate schedule of product administration [Not Recovered/Not Resolved]
